FAERS Safety Report 6263132-1 (Version None)
Quarter: 2009Q3

REPORT INFORMATION
  Report Type: 
  Country: None (occurrence: None)
  Receive Date: 20090708
  Receipt Date: 20090708
  Transmission Date: 20100115
  Serious: No
  Sender: FDA-Public Use
  Company Number: None

PATIENT
  Age: 54 Year
  Sex: Female
  Weight: 74.8435 kg

DRUGS (1)
  1. AVELOX [Suspect]
     Indication: INFECTION
     Dosage: 400 MG 1 DAILY ORAL
     Route: 048
     Dates: start: 20080428, end: 20090503

REACTIONS (9)
  - BLOOD GLUCOSE INCREASED [None]
  - DIARRHOEA [None]
  - DYSPNOEA [None]
  - GASTRIC DISORDER [None]
  - HEADACHE [None]
  - HUNGER [None]
  - HYPERHIDROSIS [None]
  - POLLAKIURIA [None]
  - TENDONITIS [None]
